FAERS Safety Report 8264828-2 (Version None)
Quarter: 2012Q2

REPORT INFORMATION
  Report Type: 
  Country: None (occurrence: None)
  Receive Date: 20120406
  Receipt Date: 20120316
  Transmission Date: 20120825
  Serious: No
  Sender: FDA-Public Use
  Company Number: US-JNJFOC-20120303875

PATIENT
  Sex: Female
  Weight: 73.48 kg

DRUGS (2)
  1. INVEGA SUSTENNA [Suspect]
     Indication: HALLUCINATION, AUDITORY
     Route: 030
     Dates: start: 20111201
  2. INVEGA [Suspect]
     Indication: HALLUCINATION, AUDITORY
     Route: 048
     Dates: start: 20111201

REACTIONS (3)
  - ABNORMAL WEIGHT GAIN [None]
  - HALLUCINATION, AUDITORY [None]
  - INSOMNIA [None]
